FAERS Safety Report 9919609 (Version 3)
Quarter: 2014Q3

REPORT INFORMATION
  Report Type: Report from Study
  Country: US (occurrence: US)
  Receive Date: 20140224
  Receipt Date: 20140703
  Transmission Date: 20150326
  Serious: Yes (Hospitalization)
  Sender: FDA-Public Use
  Company Number: US-US-EMD SERONO, INC.-7270583

PATIENT
  Age: 3 Month
  Sex: Male
  Weight: 4 kg

DRUGS (6)
  1. FIXMYSKIN HEALING BALM VANILLA FRAGRANCE [Concomitant]
     Active Substance: HYDROCORTISONE
  2. SAIZEN [Suspect]
     Active Substance: SOMATROPIN
     Indication: SMALL FOR DATES BABY
     Route: 058
     Dates: start: 20140602
  3. SAIZEN [Suspect]
     Active Substance: SOMATROPIN
     Indication: GROWTH HORMONE DEFICIENCY
  4. FIXMYSKIN HEALING BALM VANILLA FRAGRANCE [Concomitant]
     Active Substance: HYDROCORTISONE
     Indication: BLOOD CORTISOL DECREASED
  5. FIXMYSKIN HEALING BALM VANILLA FRAGRANCE [Concomitant]
     Active Substance: HYDROCORTISONE
  6. SAIZEN [Suspect]
     Active Substance: SOMATROPIN
     Indication: HYPOPITUITARISM
     Route: 058
     Dates: start: 20130601

REACTIONS (10)
  - Blood urea nitrogen/creatinine ratio increased [Unknown]
  - Carbon dioxide decreased [Unknown]
  - Blood urea decreased [Unknown]
  - Blood creatinine decreased [Unknown]
  - Blood calcium increased [Unknown]
  - Vomiting [Unknown]
  - Blood glucose increased [Unknown]
  - Treatment noncompliance [Unknown]
  - Hypoglycaemia [Recovered/Resolved]
  - Viral infection [Unknown]

NARRATIVE: CASE EVENT DATE: 20130905
